FAERS Safety Report 13618924 (Version 1)
Quarter: 2017Q2

REPORT INFORMATION
  Report Type: Spontaneous
  Country: US (occurrence: US)
  Receive Date: 20170606
  Receipt Date: 20170606
  Transmission Date: 20170830
  Serious: Yes (Death, Hospitalization)
  Sender: FDA-Public Use
  Company Number: None

PATIENT
  Age: 52 Year
  Sex: Male
  Weight: 89.6 kg

DRUGS (6)
  1. DAUNORUBICIN [Suspect]
     Active Substance: DAUNORUBICIN
     Dates: end: 20170412
  2. METHOTREXATE. [Suspect]
     Active Substance: METHOTREXATE
     Dates: end: 20170503
  3. CYTARABINE. [Concomitant]
     Active Substance: CYTARABINE
     Dates: end: 20170429
  4. CYCLOPHOSPHAMIDE. [Suspect]
     Active Substance: CYCLOPHOSPHAMIDE
     Dates: end: 20170419
  5. ONCASPAR [Suspect]
     Active Substance: PEGASPARGASE
     Dates: end: 20170503
  6. DEXAMETHASONE. [Suspect]
     Active Substance: DEXAMETHASONE
     Dates: end: 20170411

REACTIONS (8)
  - Pneumonia [None]
  - Bronchitis fungal [None]
  - Cough [None]
  - Dyspnoea [None]
  - Blood lactic acid increased [None]
  - Confusional state [None]
  - Mucormycosis [None]
  - Therapy cessation [None]

NARRATIVE: CASE EVENT DATE: 20170513
